FAERS Safety Report 7197654-6 (Version None)
Quarter: 2010Q4

REPORT INFORMATION
  Report Type: 
  Country: None (occurrence: None)
  Receive Date: 20101227
  Receipt Date: 20101216
  Transmission Date: 20110411
  Serious: Yes (Hospitalization)
  Sender: FDA-Public Use
  Company Number: FR-MILLENNIUM PHARMACEUTICALS, INC.-2010-06261

PATIENT

DRUGS (2)
  1. VELCADE [Suspect]
     Indication: MULTIPLE MYELOMA
     Dosage: 1.3 MG/M2, UNK
     Route: 042
     Dates: start: 20080201, end: 20080601
  2. DEXAMETHASONE [Concomitant]
     Dosage: 40 MG, UNK
     Dates: start: 20080201, end: 20080701

REACTIONS (1)
  - INTRACARDIAC THROMBUS [None]
